FAERS Safety Report 10196599 (Version 1)
Quarter: 2014Q2

REPORT INFORMATION
  Report Type: Spontaneous
  Country: GB (occurrence: None)
  Receive Date: 20140522
  Receipt Date: 20140522
  Transmission Date: 20141212
  Serious: Yes (Other)
  Sender: FDA-Public Use
  Company Number: AUR-APL-2014-05928

PATIENT
  Age: 32 Year
  Sex: Female

DRUGS (1)
  1. SERTRALINE (SERTRALINE) [Suspect]
     Indication: DEPRESSION
     Dosage: 100 MG, UNKNOWN

REACTIONS (1)
  - Myositis [None]
